FAERS Safety Report 16971176 (Version 2)
Quarter: 2019Q4

REPORT INFORMATION
  Report Type: Spontaneous
  Country: FR (occurrence: FR)
  Receive Date: 20191029
  Receipt Date: 20191223
  Transmission Date: 20200122
  Serious: Yes (Other)
  Sender: FDA-Public Use
  Company Number: FR-FERRINGPH-2019FE06967

PATIENT
  Age: 47 Year
  Sex: Female
  Weight: 56 kg

DRUGS (10)
  1. HYDROCORTISONE. [Suspect]
     Active Substance: HYDROCORTISONE
     Indication: HYPOPITUITARISM
     Dosage: 15 MG, 1 TIME DAILY
     Route: 048
     Dates: start: 2004
  2. NORDITROPINE SIMPLEXX [Suspect]
     Active Substance: SOMATROPIN
     Indication: HYPOPITUITARISM
     Dosage: 0.9 MG, 1 TIME DAILY
     Route: 058
     Dates: start: 20071228, end: 20180715
  3. MINIRINMELT [Suspect]
     Active Substance: DESMOPRESSIN ACETATE
     Indication: HYPOPITUITARISM
     Dosage: 120 ?G, 1 TIME DAILY
     Route: 048
     Dates: start: 2010
  4. LEVOTHYROX [Suspect]
     Active Substance: LEVOTHYROXINE
     Indication: HYPOPITUITARISM
     Dosage: 125 ?G, 1 TIME DAILY
     Route: 048
     Dates: start: 2004
  5. OMNITROPE [Suspect]
     Active Substance: SOMATROPIN
     Indication: HYPOPITUITARISM
     Dosage: 0.9 MG, 1 TIME DAILY
     Route: 058
     Dates: start: 20180715
  6. MINIRIN [Suspect]
     Active Substance: DESMOPRESSIN ACETATE
     Indication: HYPOPITUITARISM
     Dosage: UNK
     Route: 048
     Dates: start: 2004, end: 2010
  7. CIRCADIN [Suspect]
     Active Substance: MELATONIN
     Indication: HYPOPITUITARISM
     Dosage: 2 MG, 1 TIME DAILY
     Route: 048
     Dates: start: 20170623
  8. PROVAMES [Suspect]
     Active Substance: ESTRADIOL
     Indication: HYPOPITUITARISM
     Dosage: 1 MG, 1 TIME DAILY, THE FIRST 15 DAYS OF THE CYCLE
     Route: 048
     Dates: start: 20091208, end: 20131218
  9. SAIZEN [Suspect]
     Active Substance: SOMATROPIN
     Indication: HYPOPITUITARISM
     Dosage: 0.48 MG, 1 TIME DAILY
     Route: 058
     Dates: start: 2004, end: 20071228
  10. CLIMASTON                          /01248201/ [Suspect]
     Active Substance: DYDROGESTERONE\ESTRADIOL
     Indication: HYPOPITUITARISM
     Dosage: 1 DF, 1 TIME DAILY
     Route: 048
     Dates: start: 2004

REACTIONS (1)
  - Basal cell carcinoma [Recovered/Resolved]

NARRATIVE: CASE EVENT DATE: 2018
